FAERS Safety Report 5322607-X (Version None)
Quarter: 2007Q2

REPORT INFORMATION
  Report Type: 
  Country: None (occurrence: None)
  Receive Date: 20070511
  Receipt Date: 20070430
  Transmission Date: 20071010
  Serious: Yes (Hospitalization)
  Sender: FDA-Public Use
  Company Number: GB-BRISTOL-MYERS SQUIBB COMPANY-13775226

PATIENT
  Age: 46 Year
  Sex: Female

DRUGS (3)
  1. CETUXIMAB [Suspect]
     Indication: RECTAL CANCER
     Route: 042
     Dates: start: 20061030, end: 20061030
  2. ELOXATIN [Suspect]
     Indication: RECTAL CANCER
     Route: 042
     Dates: start: 20061030, end: 20061030
  3. XELODA [Suspect]
     Indication: RECTAL CANCER
     Route: 048
     Dates: start: 20061030, end: 20061030

REACTIONS (7)
  - ARRHYTHMIA SUPRAVENTRICULAR [None]
  - DIZZINESS [None]
  - DYSPNOEA [None]
  - MYOCARDIAL ISCHAEMIA [None]
  - NAUSEA [None]
  - PNEUMONIA [None]
  - VOMITING [None]
